FAERS Safety Report 5650897-2 (Version None)
Quarter: 2008Q1

REPORT INFORMATION
  Report Type: 
  Country: None (occurrence: None)
  Receive Date: 20080305
  Receipt Date: 20080226
  Transmission Date: 20080703
  Serious: Yes (Other)
  Sender: FDA-Public Use
  Company Number: PHEH2007US14880

PATIENT
  Sex: Male

DRUGS (4)
  1. ZOMETA [Suspect]
     Indication: MULTIPLE MYELOMA
     Dosage: 4 MG, EVERY 4 WEEKS
     Dates: start: 20070201, end: 20070801
  2. RADIATION THERAPY [Suspect]
     Indication: PLASMACYTOMA
  3. MELPHALAN [Concomitant]
     Indication: MULTIPLE MYELOMA
     Dosage: 18 MG X 4 DAYS
     Dates: start: 20060701, end: 20070701
  4. PREDNISONE TAB [Concomitant]
     Indication: MULTIPLE MYELOMA
     Dosage: 100 MG X 4 DAYS
     Dates: start: 20060701, end: 20070701

REACTIONS (5)
  - IMPAIRED HEALING [None]
  - OSTEONECROSIS [None]
  - TOOTH ABSCESS [None]
  - TOOTH EXTRACTION [None]
  - TOOTH FRACTURE [None]
